FAERS Safety Report 11796606 (Version 1)
Quarter: 2015Q4

REPORT INFORMATION
  Report Type: Spontaneous
  Country: US (occurrence: US)
  Receive Date: 20151203
  Receipt Date: 20151203
  Transmission Date: 20160305
  Serious: Yes (Death)
  Sender: FDA-Public Use
  Company Number: US-PURDUE PHARMA-USA-2015-0126548

PATIENT
  Sex: Female

DRUGS (2)
  1. SENOKOT [Suspect]
     Active Substance: SENNOSIDES
     Indication: CONSTIPATION
     Dosage: 3 TABLET, SINGLE
     Route: 048
     Dates: start: 20150929, end: 20150929
  2. SENOKOT [Suspect]
     Active Substance: SENNOSIDES
     Dosage: 2 TABLET, SINGLE
     Route: 048
     Dates: start: 20150928, end: 20150928

REACTIONS (4)
  - Abdominal distension [Unknown]
  - Constipation [Unknown]
  - Death [Fatal]
  - Nausea [Unknown]

NARRATIVE: CASE EVENT DATE: 20150928
